FAERS Safety Report 6944418-1 (Version None)
Quarter: 2010Q3

REPORT INFORMATION
  Report Type: 
  Country: None (occurrence: None)
  Receive Date: 20100825
  Receipt Date: 20100825
  Transmission Date: 20110219
  Serious: Yes (Death)
  Sender: FDA-Public Use
  Company Number: None

PATIENT
  Age: 84 Year
  Sex: Female

DRUGS (1)
  1. GASTROGRAFIN [Suspect]

REACTIONS (5)
  - CARDIO-RESPIRATORY ARREST [None]
  - HEART RATE DECREASED [None]
  - POSTURE ABNORMAL [None]
  - SUPRAVENTRICULAR EXTRASYSTOLES [None]
  - UNRESPONSIVE TO STIMULI [None]
